FAERS Safety Report 8947637 (Version 1)
Quarter: 2012Q4

REPORT INFORMATION
  Report Type: 
  Country: FR (occurrence: FR)
  Receive Date: 20121205
  Receipt Date: 20121205
  Transmission Date: 20130627
  Serious: Yes (Hospitalization, Other)
  Sender: FDA-Public Use
  Company Number: FR-ROCHE-1160100

PATIENT
  Age: 41 Year
  Sex: Female
  Weight: 100 kg

DRUGS (4)
  1. MABTHERA [Suspect]
     Indication: B-CELL LYMPHOMA
     Route: 042
     Dates: start: 201006, end: 201108
  2. MABTHERA [Suspect]
     Route: 042
     Dates: start: 20110103
  3. MABTHERA [Suspect]
     Route: 042
     Dates: start: 20120810
  4. MABTHERA [Suspect]
     Route: 042
     Dates: start: 20121015

REACTIONS (2)
  - Abortion spontaneous [Unknown]
  - Exposure during pregnancy [Unknown]
